FAERS Safety Report 8250817-0 (Version None)
Quarter: 2012Q1

REPORT INFORMATION
  Report Type: 
  Country: None (occurrence: None)
  Receive Date: 20120328
  Receipt Date: 20120315
  Transmission Date: 20120608
  Serious: Yes (Other)
  Sender: FDA-Public Use
  Company Number: 2012PL000036

PATIENT
  Age: 56 Year
  Sex: Female
  Weight: 116.5744 kg

DRUGS (15)
  1. LASIX [Concomitant]
  2. POTASSIUM [Concomitant]
  3. LOTRONEX [Suspect]
     Indication: IRRITABLE BOWEL SYNDROME
     Dosage: 0.5 MG, BID, PO
     Route: 048
     Dates: start: 20120124, end: 20120208
  4. LIBRAX [Concomitant]
  5. ZETIA [Concomitant]
  6. PROVIGIL [Concomitant]
  7. COZAAR [Concomitant]
  8. VITAMIN D [Concomitant]
  9. VITAMIN B-12 [Concomitant]
  10. METFORMIN HCL [Concomitant]
  11. HUMULIN R [Concomitant]
  12. ROSUVASTATIN [Concomitant]
  13. NULEV [Concomitant]
  14. SPIRONOLACTONE [Concomitant]
  15. HYDROCHLOROTHIAZIDE [Concomitant]

REACTIONS (2)
  - RECTAL HAEMORRHAGE [None]
  - COLITIS ISCHAEMIC [None]
